FAERS Safety Report 15880961 (Version 3)
Quarter: 2019Q2

REPORT INFORMATION
  Report Type: Spontaneous
  Country: JP (occurrence: JP)
  Receive Date: 20190128
  Receipt Date: 20190410
  Transmission Date: 20190711
  Serious: Yes (Hospitalization, Other)
  Sender: FDA-Public Use
  Company Number: JP-JNJFOC-20190133728

PATIENT
  Age: 70 Year
  Sex: Female
  Weight: 69 kg

DRUGS (13)
  1. TACROLIMUS. [Suspect]
     Active Substance: TACROLIMUS
     Indication: RHEUMATOID ARTHRITIS
     Route: 048
     Dates: start: 20161104
  2. DAIPHEN [Concomitant]
     Active Substance: SULFAMETHOXAZOLE\TRIMETHOPRIM
     Indication: RHEUMATOID ARTHRITIS
     Route: 065
     Dates: start: 20170721
  3. REMICADE [Suspect]
     Active Substance: INFLIXIMAB
     Indication: RHEUMATOID ARTHRITIS
     Route: 042
     Dates: start: 20180604
  4. METHOTREXATE. [Suspect]
     Active Substance: METHOTREXATE
     Indication: RHEUMATOID ARTHRITIS
     Route: 048
     Dates: start: 20160805, end: 20190104
  5. TACROLIMUS. [Suspect]
     Active Substance: TACROLIMUS
     Indication: RHEUMATOID ARTHRITIS
     Route: 048
     Dates: start: 20161104
  6. PREDNISOLONE. [Suspect]
     Active Substance: PREDNISOLONE
     Indication: RHEUMATOID ARTHRITIS
     Route: 048
     Dates: start: 20170203
  7. FOLIAMIN [Concomitant]
     Active Substance: FOLIC ACID
     Indication: RHEUMATOID ARTHRITIS
     Route: 048
     Dates: start: 20161104
  8. IGURATIMOD [Suspect]
     Active Substance: IGURATIMOD
     Indication: RHEUMATOID ARTHRITIS
     Route: 048
     Dates: start: 20170303
  9. TAKECAB [Concomitant]
     Active Substance: VONOPRAZAN FUMURATE
     Indication: RHEUMATOID ARTHRITIS
     Route: 065
     Dates: start: 20181109
  10. URSODEOXYCHOLIC ACID [Concomitant]
     Active Substance: URSODIOL
     Indication: LIVER DISORDER
     Route: 065
     Dates: start: 20180914
  11. TACROLIMUS. [Suspect]
     Active Substance: TACROLIMUS
     Indication: RHEUMATOID ARTHRITIS
     Route: 048
  12. IGURATIMOD [Suspect]
     Active Substance: IGURATIMOD
     Indication: RHEUMATOID ARTHRITIS
     Route: 048
  13. REMICADE [Suspect]
     Active Substance: INFLIXIMAB
     Indication: RHEUMATOID ARTHRITIS
     Route: 042
     Dates: start: 20181109, end: 20181109

REACTIONS (5)
  - Cytomegalovirus infection [Recovered/Resolved]
  - Liver disorder [Recovering/Resolving]
  - Ascites [Recovering/Resolving]
  - Oedema peripheral [Unknown]
  - Rheumatoid arthritis [Unknown]

NARRATIVE: CASE EVENT DATE: 201809
